FAERS Safety Report 10542956 (Version 2)
Quarter: 2014Q4

REPORT INFORMATION
  Report Type: Spontaneous
  Country: JP (occurrence: JP)
  Receive Date: 20141027
  Receipt Date: 20141027
  Transmission Date: 20150529
  Serious: Yes (Other)
  Sender: FDA-Public Use
  Company Number: JP-UCBSA-2014012402

PATIENT
  Age: 65 Year
  Sex: Female

DRUGS (13)
  1. EC DOPARL [Suspect]
     Active Substance: BENSERAZIDE HYDROCHLORIDE\LEVODOPA
     Dosage: 250 MG DAILY DOSE
     Route: 048
     Dates: start: 20130914, end: 20140829
  2. SENNA SPP. EXTRACT [Concomitant]
     Indication: PRODUCT USED FOR UNKNOWN INDICATION
     Dosage: 160 MG DAILY DOSE
     Dates: start: 20131026
  3. MAGNESIUM OXIDE. [Concomitant]
     Active Substance: MAGNESIUM OXIDE
     Indication: PRODUCT USED FOR UNKNOWN INDICATION
     Dosage: 500 MG DAILY DOSE
     Dates: start: 20131026
  4. PRAMIPEXOLE HYDROCHLORIDE [Concomitant]
     Indication: PARKINSON^S DISEASE
     Dosage: 1.5 MG
     Dates: end: 20140502
  5. SELEGILINE HYDROCHLORIDE. [Concomitant]
     Active Substance: SELEGILINE HYDROCHLORIDE
     Indication: PRODUCT USED FOR UNKNOWN INDICATION
     Dosage: 5 MG DAILY DOSE
     Dates: start: 20140719
  6. NEUPRO [Suspect]
     Active Substance: ROTIGOTINE
     Dosage: UNKNOWN DOSE
     Route: 061
     Dates: start: 201409
  7. NEUPRO [Suspect]
     Active Substance: ROTIGOTINE
     Indication: PARKINSON^S DISEASE
     Dosage: 8 MG DAILY DOSE
     Route: 061
     Dates: start: 20140503, end: 20140626
  8. EC DOPARL [Suspect]
     Active Substance: BENSERAZIDE HYDROCHLORIDE\LEVODOPA
     Indication: PRODUCT USED FOR UNKNOWN INDICATION
     Dosage: 100 MG DAILY DOSE
     Route: 048
     Dates: start: 20120214, end: 20130802
  9. EC DOPARL [Suspect]
     Active Substance: BENSERAZIDE HYDROCHLORIDE\LEVODOPA
     Dosage: 200 MG DAILY DOSE
     Route: 048
     Dates: start: 20130803, end: 20130913
  10. EC DOPARL [Suspect]
     Active Substance: BENSERAZIDE HYDROCHLORIDE\LEVODOPA
     Dosage: 300 MG DAILY DOSE
     Route: 048
  11. ETIZOLAM [Suspect]
     Active Substance: ETIZOLAM
     Indication: INSOMNIA
     Dosage: 0.5 MG DAILY , AS NEEDED (PRN)
     Route: 048
  12. NEUPRO [Suspect]
     Active Substance: ROTIGOTINE
     Dosage: 12 MG DAILY DOSE
     Route: 061
     Dates: start: 20140627, end: 20140829
  13. PITAVASTATIN CALCIUM [Concomitant]
     Active Substance: PITAVASTATIN CALCIUM
     Indication: PRODUCT USED FOR UNKNOWN INDICATION
     Dosage: 1MG DAILY DOSE
     Dates: start: 20091117

REACTIONS (3)
  - Road traffic accident [Unknown]
  - Sudden onset of sleep [Recovered/Resolved]
  - Drug titration error [Unknown]

NARRATIVE: CASE EVENT DATE: 201406
